FAERS Safety Report 4947724-5 (Version None)
Quarter: 2006Q1

REPORT INFORMATION
  Report Type: 
  Country: None (occurrence: None)
  Receive Date: 20060320
  Receipt Date: 20060301
  Transmission Date: 20060701
  Serious: Yes (Other)
  Sender: FDA-Public Use
  Company Number: US-GILEAD-2006-0009273

PATIENT
  Sex: Male

DRUGS (1)
  1. HEPSERA [Suspect]
     Indication: HEPATITIS B
     Route: 048
     Dates: start: 20031201

REACTIONS (26)
  - ANOREXIA [None]
  - BLOOD GLUCOSE FLUCTUATION [None]
  - BREATH ODOUR [None]
  - CONFUSIONAL STATE [None]
  - DELUSION [None]
  - DYSGEUSIA [None]
  - DYSPNOEA [None]
  - FEELING ABNORMAL [None]
  - FOOD CRAVING [None]
  - HEADACHE [None]
  - HEART RATE INCREASED [None]
  - INSOMNIA [None]
  - IRRITABILITY [None]
  - LOSS OF CONSCIOUSNESS [None]
  - MEMORY IMPAIRMENT [None]
  - MENTAL IMPAIRMENT [None]
  - NAUSEA [None]
  - NIGHTMARE [None]
  - PARANOIA [None]
  - PHARYNGOLARYNGEAL PAIN [None]
  - PSYCHIATRIC SYMPTOM [None]
  - SCREAMING [None]
  - SLEEP ATTACKS [None]
  - SUICIDAL IDEATION [None]
  - TREMOR [None]
  - URINE OUTPUT INCREASED [None]
